FAERS Safety Report 4774847-6 (Version None)
Quarter: 2005Q3

REPORT INFORMATION
  Report Type: 
  Country: None (occurrence: None)
  Receive Date: 20050919
  Receipt Date: 20050907
  Transmission Date: 20060218
  Serious: Yes (Other)
  Sender: FDA-Public Use
  Company Number: 2005125769

PATIENT
  Age: 59 Year
  Sex: 0

DRUGS (1)
  1. TOLTERODINE TARTRATE [Suspect]
     Indication: ILL-DEFINED DISORDER
     Dosage: (4 MG), ORAL
     Route: 048
     Dates: start: 20050601

REACTIONS (3)
  - EYE SWELLING [None]
  - LOCAL SWELLING [None]
  - RASH ERYTHEMATOUS [None]
